FAERS Safety Report 18423931 (Version 2)
Quarter: 2020Q4

REPORT INFORMATION
  Report Type: Report from Study
  Country: BR (occurrence: BR)
  Receive Date: 20201025
  Receipt Date: 20201130
  Transmission Date: 20210114
  Serious: Yes (Life-Threatening, Hospitalization, Other)
  Sender: FDA-Public Use
  Company Number: NVSC2019BR094754

PATIENT
  Age: 64 Year
  Sex: Female
  Weight: 80 kg

DRUGS (9)
  1. SANDOSTATIN LAR DEPOT [Suspect]
     Active Substance: OCTREOTIDE ACETATE
     Dosage: UNK
     Route: 065
     Dates: start: 20190904
  2. SANDOSTATIN LAR DEPOT [Suspect]
     Active Substance: OCTREOTIDE ACETATE
     Dosage: UNK
     Route: 065
     Dates: start: 20200922
  3. SANDOSTATIN LAR DEPOT [Suspect]
     Active Substance: OCTREOTIDE ACETATE
     Indication: ACROMEGALY
     Dosage: UNK
     Route: 030
     Dates: start: 201811
  4. SANDOSTATIN LAR DEPOT [Suspect]
     Active Substance: OCTREOTIDE ACETATE
     Dosage: 20 MG, QMO (EVERY 4 WEEKS)
     Route: 030
     Dates: start: 201909
  5. SANDOSTATIN LAR DEPOT [Suspect]
     Active Substance: OCTREOTIDE ACETATE
     Dosage: UNK
     Route: 030
     Dates: start: 20191106
  6. SANDOSTATIN LAR DEPOT [Suspect]
     Active Substance: OCTREOTIDE ACETATE
     Dosage: UNK (EVERY TWENTY EIGHT DAYS)
     Route: 030
     Dates: start: 20190814
  7. INSULIN REGULAR [Concomitant]
     Active Substance: INSULIN NOS
     Indication: DIABETES MELLITUS
     Dosage: UNK
     Route: 058
  8. LOSARTAN. [Concomitant]
     Active Substance: LOSARTAN
     Indication: HYPERTENSION
     Dosage: UNK
     Route: 048
  9. ISOPHANE INSULIN [Concomitant]
     Active Substance: INSULIN NOS
     Indication: DIABETES MELLITUS
     Dosage: UNK
     Route: 058

REACTIONS (52)
  - Feeling abnormal [Recovered/Resolved]
  - Diabetes mellitus inadequate control [Unknown]
  - Somnolence [Recovered/Resolved]
  - Hyperhidrosis [Recovered/Resolved]
  - Heart rate decreased [Recovered/Resolved]
  - Blood pressure increased [Recovered/Resolved]
  - Syncope [Recovered/Resolved]
  - Feeling abnormal [Not Recovered/Not Resolved]
  - Head discomfort [Unknown]
  - Syncope [Recovered/Resolved]
  - Pain [Not Recovered/Not Resolved]
  - Needle issue [Unknown]
  - Dizziness [Unknown]
  - Crying [Unknown]
  - Nose deformity [Not Recovered/Not Resolved]
  - Blood glucose increased [Recovered/Resolved]
  - Infarction [Recovered/Resolved]
  - Blood glucose decreased [Recovered/Resolved]
  - Hypertension [Unknown]
  - Asthenia [Unknown]
  - Headache [Not Recovered/Not Resolved]
  - Peripheral swelling [Not Recovered/Not Resolved]
  - Hypoglycaemia [Unknown]
  - Hormone level abnormal [Not Recovered/Not Resolved]
  - Headache [Recovered/Resolved]
  - Diarrhoea [Recovering/Resolving]
  - Hypoglycaemia [Recovered/Resolved]
  - Disorientation [Recovered/Resolved]
  - Tendonitis [Unknown]
  - Head discomfort [Not Recovered/Not Resolved]
  - Affect lability [Unknown]
  - Neck pain [Recovered/Resolved]
  - Respiratory rate decreased [Recovered/Resolved]
  - Malaise [Recovered/Resolved]
  - Injection site pain [Recovered/Resolved]
  - Loss of consciousness [Recovered/Resolved]
  - Feeling abnormal [Recovered/Resolved]
  - Nervousness [Unknown]
  - Stress [Not Recovered/Not Resolved]
  - Blood glucose increased [Not Recovered/Not Resolved]
  - Balance disorder [Unknown]
  - Peripheral swelling [Recovered/Resolved]
  - Ear disorder [Not Recovered/Not Resolved]
  - Malaise [Unknown]
  - Depression [Recovered/Resolved]
  - Malaise [Recovered/Resolved]
  - General physical health deterioration [Not Recovered/Not Resolved]
  - Neck pain [Recovered/Resolved]
  - Gait disturbance [Recovered/Resolved]
  - Hormone level abnormal [Recovered/Resolved]
  - Tongue disorder [Not Recovered/Not Resolved]
  - Abdominal pain [Recovering/Resolving]

NARRATIVE: CASE EVENT DATE: 20191104
